FAERS Safety Report 26199196 (Version 1)
Quarter: 2025Q4

REPORT INFORMATION
  Report Type: Spontaneous
  Country: US (occurrence: US)
  Receive Date: 20251225
  Receipt Date: 20251225
  Transmission Date: 20260118
  Serious: No
  Sender: ALEXION PHARMACEUTICALS
  Company Number: US-AstraZeneca-CH-01018622AP

PATIENT

DRUGS (1)
  1. BREZTRI [Suspect]
     Active Substance: BUDESONIDE\FORMOTEROL\GLYCOPYRROLATE
     Dosage: 160 MICROGRAM
     Route: 065

REACTIONS (7)
  - Device delivery system issue [Unknown]
  - Wrong technique in product usage process [Unknown]
  - Fatigue [Unknown]
  - Drug ineffective [Unknown]
  - Adverse event [Unknown]
  - Dental care [Unknown]
  - Nervousness [Unknown]
